FAERS Safety Report 9772998 (Version 1)
Quarter: 2013Q4

REPORT INFORMATION
  Report Type: Spontaneous
  Country: IT (occurrence: IT)
  Receive Date: 20131219
  Receipt Date: 20131219
  Transmission Date: 20140711
  Serious: Yes (Other)
  Sender: FDA-Public Use
  Company Number: IT-TEVA-450611ISR

PATIENT
  Age: 52 Year
  Sex: Male

DRUGS (3)
  1. CARBAMAZEPINE [Suspect]
     Indication: EPILEPSY
     Route: 065
  2. PHENOBARBITAL [Suspect]
     Indication: EPILEPSY
     Dosage: 100 MG/D THEN 200 MG/D
     Route: 065
  3. PHENOBARBITAL [Suspect]
     Dosage: 200 MILLIGRAM DAILY;
     Route: 065

REACTIONS (2)
  - Osteomalacia [Recovered/Resolved]
  - Myopathy [Recovered/Resolved]
